FAERS Safety Report 5576569-0 (Version None)
Quarter: 2007Q4

REPORT INFORMATION
  Report Type: 
  Country: None (occurrence: None)
  Receive Date: 20071228
  Receipt Date: 20070925
  Transmission Date: 20080405
  Serious: No
  Sender: FDA-Public Use
  Company Number: A0683929A

PATIENT
  Age: 70 Year
  Sex: Female

DRUGS (3)
  1. FLOVENT [Suspect]
     Indication: ASTHMA
     Dosage: 2SPR PER DAY
     Route: 055
  2. SYMBICORT [Concomitant]
  3. PRO-AIR [Concomitant]

REACTIONS (4)
  - DIARRHOEA [None]
  - INCREASED TENDENCY TO BRUISE [None]
  - PALPITATIONS [None]
  - SKIN DISCOLOURATION [None]
